FAERS Safety Report 10072246 (Version 3)
Quarter: 2014Q2

REPORT INFORMATION
  Report Type: Spontaneous
  Country: IT (occurrence: IT)
  Receive Date: 20140411
  Receipt Date: 20140523
  Transmission Date: 20141212
  Serious: Yes (Death, Life-Threatening, Other)
  Sender: FDA-Public Use
  Company Number: IT-ASTRAZENECA-2014SE24851

PATIENT
  Age: 28130 Day
  Sex: Female
  Weight: 75 kg

DRUGS (14)
  1. BRILIQUE [Suspect]
     Indication: ACUTE CORONARY SYNDROME
     Route: 048
     Dates: start: 20140321, end: 20140402
  2. BRILIQUE [Suspect]
     Indication: ACUTE MYOCARDIAL INFARCTION
     Route: 048
     Dates: start: 20140321, end: 20140402
  3. BRILIQUE [Suspect]
     Indication: ACUTE CORONARY SYNDROME
     Route: 048
     Dates: start: 20140321, end: 20140403
  4. BRILIQUE [Suspect]
     Indication: ACUTE MYOCARDIAL INFARCTION
     Route: 048
     Dates: start: 20140321, end: 20140403
  5. CARDIOASPIRIN [Suspect]
     Indication: THROMBOSIS PROPHYLAXIS
     Dates: start: 20140321, end: 20140403
  6. CARDIOASPIRIN [Suspect]
     Indication: THROMBOSIS PROPHYLAXIS
     Dates: start: 20140321, end: 20140402
  7. ANGIOX [Suspect]
     Indication: CORONARY ANGIOPLASTY
     Dosage: 250 MG VIALS, 245 MG UNKNOWN
     Route: 042
     Dates: start: 20140401, end: 20140401
  8. CLEXANE [Concomitant]
     Indication: ANTICOAGULANT THERAPY
     Dosage: 6000, 4000 IU TWO TIMES A DAY
     Route: 058
     Dates: start: 20140321, end: 20140403
  9. CLEXANE [Concomitant]
     Indication: ANTICOAGULANT THERAPY
     Dosage: 6000UI AXA/0.6 ML SOLUTION FOR INJECTION, 2 DF UNKNOWN
     Route: 058
     Dates: start: 20140321, end: 20140402
  10. FLECTADOL [Concomitant]
  11. AMIODARONE [Concomitant]
     Route: 040
  12. TRINITRINA [Concomitant]
     Route: 042
  13. LASIX [Concomitant]
     Dates: start: 20140321, end: 20140403
  14. CONGESCOR [Concomitant]
     Dates: start: 20140321, end: 20140403

REACTIONS (7)
  - Bradycardia [Fatal]
  - Cardiac arrest [Fatal]
  - Haemorrhage intracranial [Fatal]
  - Peripheral embolism [Unknown]
  - Coma [Unknown]
  - Mitral valve incompetence [Unknown]
  - Therapy cessation [Unknown]
